FAERS Safety Report 13333170 (Version 1)
Quarter: 2017Q1

REPORT INFORMATION
  Report Type: Spontaneous
  Country: US (occurrence: US)
  Receive Date: 20170314
  Receipt Date: 20170314
  Transmission Date: 20170428
  Serious: No
  Sender: FDA-Public Use
  Company Number: US-GLAXOSMITHKLINE-US2017034632

PATIENT
  Sex: Male

DRUGS (1)
  1. VENTOLIN HFA [Suspect]
     Active Substance: ALBUTEROL SULFATE
     Indication: BRONCHITIS
     Dosage: 2 PUFF(S), UNK
     Route: 055
     Dates: start: 201502

REACTIONS (4)
  - Expired product administered [Recovered/Resolved]
  - Device use error [Recovered/Resolved]
  - Product cleaning inadequate [Recovered/Resolved]
  - Product use issue [Unknown]
